FAERS Safety Report 15968171 (Version 1)
Quarter: 2019Q1

REPORT INFORMATION
  Report Type: Spontaneous
  Country: FR (occurrence: FR)
  Receive Date: 20190215
  Receipt Date: 20190215
  Transmission Date: 20190418
  Serious: Yes (Other)
  Sender: FDA-Public Use
  Company Number: FR-MYLANLABS-2019M1013604

PATIENT
  Age: 62 Year
  Sex: Female

DRUGS (4)
  1. FUMAFER [Suspect]
     Active Substance: FERROUS FUMARATE
     Indication: SURGERY
     Dosage: 1 DOSAGE FORM
     Route: 048
     Dates: start: 20180719, end: 20180719
  2. OXYCONTIN [Suspect]
     Active Substance: OXYCODONE HYDROCHLORIDE
     Indication: SURGERY
     Dosage: 1 DOSAGE FORM
     Route: 048
     Dates: start: 20180719, end: 20180719
  3. OXYNORM [Suspect]
     Active Substance: OXYCODONE HYDROCHLORIDE
     Indication: SURGERY
     Dosage: 1 DOSAGE FORM
     Route: 048
     Dates: start: 20180719, end: 20180719
  4. MACROGOL [Suspect]
     Active Substance: POLYETHYLENE GLYCOLS
     Indication: SURGERY
     Dosage: 1 DOSAGE FORM
     Route: 048
     Dates: start: 20180719, end: 20180719

REACTIONS (1)
  - Urticaria [Recovered/Resolved]

NARRATIVE: CASE EVENT DATE: 20180719
